FAERS Safety Report 7778267-1 (Version None)
Quarter: 2011Q3

REPORT INFORMATION
  Report Type: 
  Country: None (occurrence: None)
  Receive Date: 20110926
  Receipt Date: 20110908
  Transmission Date: 20111222
  Serious: No
  Sender: FDA-Public Use
  Company Number: US-BAYER-2011-089493

PATIENT
  Age: 35 Year
  Sex: Female

DRUGS (2)
  1. MIRENA [Suspect]
     Indication: CONTRACEPTION
     Dosage: 20 ?G/D, CONT
     Route: 015
     Dates: start: 20100219, end: 20110524
  2. MIRENA [Suspect]
     Indication: MENORRHAGIA

REACTIONS (1)
  - INTRA-UTERINE CONTRACEPTIVE DEVICE REMOVAL [None]
